FAERS Safety Report 15361306 (Version 1)
Quarter: 2018Q3

REPORT INFORMATION
  Report Type: Spontaneous
  Country: US (occurrence: US)
  Receive Date: 20180907
  Receipt Date: 20180907
  Transmission Date: 20181010
  Serious: No
  Sender: FDA-Public Use
  Company Number: US-JNJFOC-20180800017

PATIENT
  Age: 26 Year
  Sex: Female
  Weight: 113.4 kg

DRUGS (4)
  1. ORTHO TRI CYCLEN LO [Suspect]
     Active Substance: ETHINYL ESTRADIOL\NORGESTIMATE
     Indication: ACNE
     Route: 048
     Dates: start: 201304, end: 201601
  2. ORTHO TRI CYCLEN LO [Suspect]
     Active Substance: ETHINYL ESTRADIOL\NORGESTIMATE
     Indication: ACNE
     Route: 048
  3. NEXPLANON [Suspect]
     Active Substance: ETONOGESTREL
     Indication: ACNE
     Route: 048
     Dates: start: 201601
  4. TOVIAZ [Concomitant]
     Active Substance: FESOTERODINE FUMARATE
     Indication: HYPERTONIC BLADDER
     Route: 065

REACTIONS (8)
  - Drug dose omission [Unknown]
  - Therapeutic response unexpected [Unknown]
  - Weight increased [Unknown]
  - Weight decreased [Recovered/Resolved]
  - Acne [Unknown]
  - Product use in unapproved indication [Unknown]
  - Hypomenorrhoea [Not Recovered/Not Resolved]
  - Product packaging issue [Unknown]

NARRATIVE: CASE EVENT DATE: 201304
